FAERS Safety Report 6896470-X (Version None)
Quarter: 2010Q3

REPORT INFORMATION
  Report Type: 
  Country: None (occurrence: None)
  Receive Date: 20100802
  Receipt Date: 20090305
  Transmission Date: 20110219
  Serious: No
  Sender: FDA-Public Use
  Company Number: US-PFIZER INC-2009179428

PATIENT

DRUGS (1)
  1. NEURONTIN [Suspect]
     Dosage: 800 MG, UNK

REACTIONS (1)
  - DRUG INEFFECTIVE [None]
